FAERS Safety Report 5679605-6 (Version None)
Quarter: 2008Q1

REPORT INFORMATION
  Report Type: 
  Country: None (occurrence: None)
  Receive Date: 20080325
  Receipt Date: 20080319
  Transmission Date: 20080703
  Serious: Yes (Other)
  Sender: FDA-Public Use
  Company Number: CA-ALLERGAN-0803418US

PATIENT
  Sex: Male

DRUGS (1)
  1. BOTOX [Suspect]
     Indication: CEREBRAL PALSY
     Dosage: 22.6 IU/KG, SINGLE
     Route: 030
     Dates: start: 20080213, end: 20080213

REACTIONS (4)
  - ASTHENIA [None]
  - DYSPHAGIA [None]
  - EYELID PTOSIS [None]
  - MUSCULAR WEAKNESS [None]
